FAERS Safety Report 23058461 (Version 2)
Quarter: 2023Q4

REPORT INFORMATION
  Report Type: Spontaneous
  Country: US (occurrence: US)
  Receive Date: 20231012
  Receipt Date: 20231213
  Transmission Date: 20240110
  Serious: Yes (Death, Hospitalization, Other)
  Sender: FDA-Public Use
  Company Number: US-IPSEN Group, Research and Development-2023-23371

PATIENT
  Age: 1 Year
  Sex: Male
  Weight: 9 kg

DRUGS (30)
  1. TAZVERIK [Suspect]
     Active Substance: TAZEMETOSTAT HYDROBROMIDE
     Indication: Soft tissue neoplasm
     Dosage: 400 MG, TWICE DAILY NG TUBE
     Route: 065
  2. TAZVERIK [Suspect]
     Active Substance: TAZEMETOSTAT HYDROBROMIDE
     Dosage: 400 MG, TWICE DAILY NG TUBE
     Route: 065
     Dates: start: 202309
  3. ACETAMINOPHEN [Concomitant]
     Active Substance: ACETAMINOPHEN
  4. ASPIRIN [Concomitant]
     Active Substance: ASPIRIN
  5. CYCLOPHOSPHAMIDE [Concomitant]
     Active Substance: CYCLOPHOSPHAMIDE
  6. DACTINOMYCIN [Concomitant]
     Active Substance: DACTINOMYCIN
  7. DIPHENHYDRAMINE [Concomitant]
     Active Substance: DIPHENHYDRAMINE
  8. DOCUSATE [Concomitant]
     Active Substance: DOCUSATE
  9. EPINEPHRINE [Concomitant]
     Active Substance: EPINEPHRINE
  10. FAMOTIDINE [Concomitant]
     Active Substance: FAMOTIDINE
  11. INTRALIPID [Concomitant]
     Active Substance: EGG PHOSPHOLIPIDS\GLYCERIN\SOYBEAN OIL
  12. HEPARIN [Concomitant]
     Active Substance: HEPARIN SODIUM
  13. HYDROCORTISONE [Concomitant]
     Active Substance: HYDROCORTISONE
  14. ASPERCREME NOS [Concomitant]
     Active Substance: MENTHOL\TROLAMINE SALICYLATE
  15. LORAZEPAM [Concomitant]
     Active Substance: LORAZEPAM
  16. MELATONIN [Concomitant]
     Active Substance: MELATONIN
  17. MESNA [Concomitant]
     Active Substance: MESNA
  18. MORPHINE SULFATE [Concomitant]
     Active Substance: MORPHINE SULFATE
  19. OMNIPAQUE [Concomitant]
     Active Substance: IOHEXOL
  20. ZOFRAN [Concomitant]
     Active Substance: ONDANSETRON HYDROCHLORIDE
  21. OXYCODONE [Concomitant]
     Active Substance: OXYCODONE
  22. NEULASTA [Concomitant]
     Active Substance: PEGFILGRASTIM
  23. GLYCOLAX [Concomitant]
     Active Substance: POLYETHYLENE GLYCOL 3350
  24. PREDNISOLONE [Concomitant]
     Active Substance: PREDNISOLONE
  25. SIMETHICONE (DIMETHICONE) [Concomitant]
     Active Substance: DIMETHICONE
  26. SODIUM CHLORIDE [Concomitant]
     Active Substance: SODIUM CHLORIDE
  27. TACROLIMUS [Concomitant]
     Active Substance: TACROLIMUS
  28. VALCYTE [Concomitant]
     Active Substance: VALGANCICLOVIR HYDROCHLORIDE
  29. ONCOVIN [Concomitant]
     Active Substance: VINCRISTINE SULFATE
  30. BENADRYL [Concomitant]
     Active Substance: DIPHENHYDRAMINE HYDROCHLORIDE

REACTIONS (7)
  - Death [Fatal]
  - Hospitalisation [Unknown]
  - Pyrexia [Recovering/Resolving]
  - Vomiting [Recovering/Resolving]
  - Hepatic enzyme abnormal [Recovering/Resolving]
  - Blood bilirubin abnormal [Recovering/Resolving]
  - Off label use [Unknown]

NARRATIVE: CASE EVENT DATE: 20231201
